FAERS Safety Report 6908242-8 (Version None)
Quarter: 2010Q3

REPORT INFORMATION
  Report Type: 
  Country: None (occurrence: None)
  Receive Date: 20100805
  Receipt Date: 20100727
  Transmission Date: 20110219
  Serious: Yes (Hospitalization, Other)
  Sender: FDA-Public Use
  Company Number: US-ROCHE-712961

PATIENT
  Sex: Male
  Weight: 114.2 kg

DRUGS (15)
  1. BEVACIZUMAB [Suspect]
     Indication: PROSTATE CANCER
     Route: 042
     Dates: start: 20100617
  2. TEMSIROLIMUS [Suspect]
     Indication: PROSTATE CANCER
     Route: 042
     Dates: start: 20100609, end: 20100617
  3. OMEPRAZOLE [Concomitant]
  4. LUPRON [Concomitant]
  5. M.V.I. [Concomitant]
  6. TUMS [Concomitant]
  7. FLOMAX [Concomitant]
  8. CEREBREX [Concomitant]
     Dosage: 200 MG, 1-2 TABLETS DAILY
  9. FLONASE [Concomitant]
     Dosage: 50MCG/ACTUATION NASAL SPRAY ONE SPARY EACH NOSTRIL DAILY AS NEEDED
  10. ADVAIR DISKUS 100/50 [Concomitant]
     Dosage: DOSE: 500MCG/50MCG, ONCE DAILY
  11. ALBUTEROL [Concomitant]
     Dosage: 90 MCG/ACTUATION AEROSOL INHALER AS NEEDED
  12. COMPAZINE [Concomitant]
     Dosage: AS NEEDED
  13. NYSTATIN [Concomitant]
     Dosage: 100,000 UNIT/ML ORAL SUSPENSION AS NEEDED
  14. OXYCONTIN [Concomitant]
     Dosage: 20MG 12 HR TABLET 1 TABLET THRICE DAILY
  15. PERCOCET [Concomitant]
     Dosage: 10MG/325MG, 1 TAB EVERY 6 HRS AS NEEDED

REACTIONS (10)
  - ACTIVITIES OF DAILY LIVING IMPAIRED [None]
  - DECREASED APPETITE [None]
  - DISEASE PROGRESSION [None]
  - FATIGUE [None]
  - MUSCULAR WEAKNESS [None]
  - NAUSEA [None]
  - PAIN IN EXTREMITY [None]
  - PNEUMONIA [None]
  - VISION BLURRED [None]
  - VOMITING [None]
